FAERS Safety Report 4707598-4 (Version None)
Quarter: 2005Q3

REPORT INFORMATION
  Report Type: 
  Country: None (occurrence: None)
  Receive Date: 20050705
  Receipt Date: 20050624
  Transmission Date: 20060218
  Serious: Yes (Other)
  Sender: FDA-Public Use
  Company Number: 2005-06-1723

PATIENT
  Age: 62 Year
  Sex: Female
  Weight: 63 kg

DRUGS (5)
  1. PEG-INTRON [Suspect]
     Indication: HEPATITIS C
     Dosage: 80 MCG QW SUBCUTANEOUS
     Route: 058
     Dates: start: 20050215, end: 20050215
  2. REBETOL [Suspect]
     Indication: HEPATITIS C
     Dosage: 800 MG ORAL
     Route: 048
     Dates: start: 20050215, end: 20050222
  3. URSODIOL [Concomitant]
  4. GLYCYRON [Concomitant]
  5. GASTER [Concomitant]

REACTIONS (3)
  - CONDITION AGGRAVATED [None]
  - KERATITIS HERPETIC [None]
  - PYREXIA [None]
